FAERS Safety Report 11267411 (Version 2)
Quarter: 2015Q3

REPORT INFORMATION
  Report Type: Spontaneous
  Country: TR (occurrence: TR)
  Receive Date: 20150713
  Receipt Date: 20150727
  Transmission Date: 20151125
  Serious: Yes (Other)
  Sender: FDA-Public Use
  Company Number: TR-MYLANLABS-2015M1022997

PATIENT

DRUGS (14)
  1. ASPIRIN                            /00002701/ [Suspect]
     Active Substance: ASPIRIN
     Dosage: 60MG ON DAY 2
     Route: 065
  2. ASPIRIN                            /00002701/ [Suspect]
     Active Substance: ASPIRIN
     Dosage: 325MG ON DAY 3
     Route: 065
  3. FLURBIPROFEN. [Suspect]
     Active Substance: FLURBIPROFEN
     Dosage: 10MG
     Route: 048
  4. FLURBIPROFEN. [Suspect]
     Active Substance: FLURBIPROFEN
     Dosage: 50MG
     Route: 048
  5. NAPROXEN. [Suspect]
     Active Substance: NAPROXEN
     Indication: ABDOMINAL PAIN
  6. ASPIRIN                            /00002701/ [Suspect]
     Active Substance: ASPIRIN
     Dosage: 600MG ON DAY 3
     Route: 065
  7. FLURBIPROFEN. [Suspect]
     Active Substance: FLURBIPROFEN
     Dosage: 100MG
     Route: 048
  8. ASPIRIN                            /00002701/ [Suspect]
     Active Substance: ASPIRIN
     Dosage: 40MG ON DAY 1 AND DAY 2
     Route: 065
  9. FLURBIPROFEN. [Suspect]
     Active Substance: FLURBIPROFEN
     Indication: ABDOMINAL PAIN
     Dosage: UNK
     Route: 048
  10. ASPIRIN                            /00002701/ [Suspect]
     Active Substance: ASPIRIN
     Dosage: 100MG ON DAY 2
     Route: 065
  11. NIMESULIDE [Suspect]
     Active Substance: NIMESULIDE
     Dosage: 75MG
     Route: 048
  12. ASPIRIN                            /00002701/ [Suspect]
     Active Substance: ASPIRIN
     Indication: PRODUCT USED FOR UNKNOWN INDICATION
     Dosage: 20MG ON DAY 1
     Route: 065
  13. ASPIRIN                            /00002701/ [Suspect]
     Active Substance: ASPIRIN
     Dosage: 160MG ON DAY 3
     Route: 065
  14. NIMESULIDE [Suspect]
     Active Substance: NIMESULIDE
     Indication: PRODUCT USED FOR UNKNOWN INDICATION
     Dosage: 25MG
     Route: 048

REACTIONS (2)
  - Aspirin-exacerbated respiratory disease [Recovered/Resolved]
  - Drug intolerance [Recovered/Resolved]
